FAERS Safety Report 8004730-4 (Version None)
Quarter: 2011Q4

REPORT INFORMATION
  Report Type: 
  Country: None (occurrence: None)
  Receive Date: 20111220
  Receipt Date: 20111206
  Transmission Date: 20120403
  Serious: Yes (Other)
  Sender: FDA-Public Use
  Company Number: 1000020771

PATIENT
  Age: 51 Year
  Sex: Female
  Weight: 58 kg

DRUGS (1)
  1. ESCITALOPRAM OXALATE [Suspect]
     Indication: DEPRESSION
     Dosage: 10 MG (10 MG, 1 IN 1 D), ORAL
     Route: 048
     Dates: start: 20100803, end: 20110527

REACTIONS (6)
  - COUGH [None]
  - RHINITIS [None]
  - OEDEMA MUCOSAL [None]
  - NASAL OBSTRUCTION [None]
  - SINUSITIS [None]
  - ANOSMIA [None]
